FAERS Safety Report 16979957 (Version 2)
Quarter: 2019Q4

REPORT INFORMATION
  Report Type: Report from Study
  Country: None (occurrence: DE)
  Receive Date: 20191031
  Receipt Date: 20191204
  Transmission Date: 20200122
  Serious: Yes (Hospitalization)
  Sender: FDA-Public Use
  Company Number: DE-ABBVIE-19K-062-2980858-00

PATIENT
  Age: 51 Year
  Sex: Male
  Weight: 86 kg

DRUGS (8)
  1. METOPROLOL. [Suspect]
     Active Substance: METOPROLOL
     Indication: CARDIOVASCULAR DISORDER
     Dosage: DRUG STARTED BEFORE MAVIRET THERAPY.
     Route: 065
  2. COLCHICINE. [Concomitant]
     Active Substance: COLCHICINE
     Indication: CARDIOVASCULAR DISORDER
     Dosage: THERAPY START DATE BEFORE MAVIRET THERAPY.
  3. MARCUMAR [Concomitant]
     Active Substance: PHENPROCOUMON
     Indication: CARDIOVASCULAR DISORDER
     Dosage: AS PER INTERNATIONAL NORMALIZED RATIO, DRUG STARTED BEFORE MAVIRET THERAPY.
  4. MAVIRET [Suspect]
     Active Substance: GLECAPREVIR\PIBRENTASVIR
     Indication: CHRONIC HEPATITIS C
     Route: 048
     Dates: start: 20190930, end: 20191124
  5. CANDESARTAN. [Concomitant]
     Active Substance: CANDESARTAN
     Indication: CARDIOVASCULAR DISORDER
     Dosage: THERAPY START DATE BEFORE MAVIRET THERAPY.
  6. PREDNISOLON [Concomitant]
     Active Substance: PREDNISOLONE
     Indication: CARDIOVASCULAR DISORDER
     Dosage: THERAPY START DATE BEFORE MAVIRET THERAPY.
  7. PANTOZOL [Concomitant]
     Active Substance: PANTOPRAZOLE SODIUM
     Indication: PRODUCT USED FOR UNKNOWN INDICATION
  8. METOPROLOL. [Suspect]
     Active Substance: METOPROLOL
     Dosage: DURING MAVIRET THERAPY.
     Route: 065

REACTIONS (1)
  - Arrhythmia [Recovered/Resolved]

NARRATIVE: CASE EVENT DATE: 20191024
